FAERS Safety Report 4582893-0 (Version None)
Quarter: 2005Q1

REPORT INFORMATION
  Report Type: 
  Country: None (occurrence: None)
  Receive Date: 20050215
  Receipt Date: 20041207
  Transmission Date: 20050727
  Serious: Yes (Other)
  Sender: FDA-Public Use
  Company Number: PHNU2004DE04151

PATIENT
  Sex: Female
  Weight: 52 kg

DRUGS (1)
  1. GLEEVEC [Suspect]
     Indication: GASTROINTESTINAL STROMAL TUMOUR
     Dosage: 400MG/DAY
     Route: 048
     Dates: start: 20040619

REACTIONS (1)
  - HYPOGLYCAEMIA [None]
